FAERS Safety Report 12211769 (Version 1)
Quarter: 2016Q1

REPORT INFORMATION
  Report Type: Spontaneous
  Country: US (occurrence: US)
  Receive Date: 20160325
  Receipt Date: 20160325
  Transmission Date: 20160526
  Serious: Yes (Other)
  Sender: FDA-Public Use
  Company Number: US-ELI_LILLY_AND_COMPANY-US201603007256

PATIENT
  Age: 52 Year
  Sex: Male

DRUGS (10)
  1. ASPIRIN                            /00002701/ [Concomitant]
     Active Substance: ASPIRIN
  2. LANTUS [Concomitant]
     Active Substance: INSULIN GLARGINE
  3. OMEPRAZOLE. [Concomitant]
     Active Substance: OMEPRAZOLE
     Dosage: 40 MG, UNKNOWN
     Route: 065
  4. CIALIS [Suspect]
     Active Substance: TADALAFIL
     Indication: ERECTILE DYSFUNCTION
     Dosage: 20 MG, UNKNOWN
     Route: 065
     Dates: start: 201512
  5. DIOVAN [Concomitant]
     Active Substance: VALSARTAN
     Dosage: 120 MG, UNKNOWN
     Route: 065
  6. FLEXERIL [Concomitant]
     Active Substance: CYCLOBENZAPRINE HYDROCHLORIDE
     Dosage: 10 MG, UNKNOWN
     Route: 065
  7. IBUPROFEN. [Concomitant]
     Active Substance: IBUPROFEN
     Dosage: 600 MG, UNKNOWN
     Route: 065
  8. AMARYL [Concomitant]
     Active Substance: GLIMEPIRIDE
     Dosage: UNK, UNKNOWN
     Route: 065
  9. GEMFIBROZIL. [Concomitant]
     Active Substance: GEMFIBROZIL
  10. GABAPENTIN. [Concomitant]
     Active Substance: GABAPENTIN
     Dosage: 800 MG, UNK

REACTIONS (6)
  - Wrong technique in product usage process [Unknown]
  - Blood glucose decreased [Unknown]
  - Prostatic disorder [Unknown]
  - Fall [Unknown]
  - Ear infection [Unknown]
  - Asthenia [Unknown]

NARRATIVE: CASE EVENT DATE: 20160308
